FAERS Safety Report 6596486-7 (Version None)
Quarter: 2010Q1

REPORT INFORMATION
  Report Type: 
  Country: None (occurrence: None)
  Receive Date: 20100223
  Receipt Date: 20100217
  Transmission Date: 20100710
  Serious: Yes (Death)
  Sender: FDA-Public Use
  Company Number: US-SANOFI-AVENTIS-2010SA009433

PATIENT
  Sex: Male
  Weight: 93 kg

DRUGS (1)
  1. LOVENOX [Suspect]
     Dosage: 120 OR 125MG BID
     Route: 065

REACTIONS (1)
  - DEATH [None]
